FAERS Safety Report 6029862-1 (Version None)
Quarter: 2009Q1

REPORT INFORMATION
  Report Type: 
  Country: None (occurrence: None)
  Receive Date: 20090106
  Receipt Date: 20090106
  Transmission Date: 20090719
  Serious: No
  Sender: FDA-Public Use
  Company Number: None

PATIENT

DRUGS (2)
  1. REFRESH PLUS LUBRICATING EYE 0.5%, 0.4ML DROPPERETTE ALLERGAN [Suspect]
     Indication: DRY EYE
     Dosage: 1GTT EACH EYE 4 TIMES DAILY OPHTHALMIC OVER ONE YEAR
     Route: 047
  2. RESTASIS [Suspect]
     Indication: DRY EYE
     Dosage: 1GTT EACH EYE TWICE DAILY OPHTHALMIC
     Route: 047

REACTIONS (2)
  - INTERCEPTED DRUG ADMINISTRATION ERROR [None]
  - MEDICATION ERROR [None]
